FAERS Safety Report 21232909 (Version 1)
Quarter: 2022Q3

REPORT INFORMATION
  Report Type: Spontaneous
  Country: AR (occurrence: AR)
  Receive Date: 20220819
  Receipt Date: 20220819
  Transmission Date: 20221026
  Serious: Yes (Other)
  Sender: FDA-Public Use
  Company Number: AR-PFIZER INC-PV202200045021

PATIENT
  Age: 75 Year
  Sex: Female

DRUGS (1)
  1. XELJANZ [Suspect]
     Active Substance: TOFACITINIB CITRATE
     Indication: Rheumatoid arthritis
     Dosage: 5 MG, 2X/DAY
     Dates: start: 20160120

REACTIONS (5)
  - Rheumatoid arthritis [Not Recovered/Not Resolved]
  - Blindness [Not Recovered/Not Resolved]
  - Product prescribing error [Not Recovered/Not Resolved]
  - Walking disability [Not Recovered/Not Resolved]
  - Nervousness [Not Recovered/Not Resolved]
